FAERS Safety Report 10025840 (Version 1)
Quarter: 2014Q1

REPORT INFORMATION
  Report Type: Spontaneous
  Country: NG (occurrence: None)
  Receive Date: 20140314
  Receipt Date: 20140314
  Transmission Date: 20141002
  Serious: Yes (Other)
  Sender: FDA-Public Use
  Company Number: AUR-APL-2014-00813

PATIENT
  Age: 29 Year
  Sex: 0

DRUGS (3)
  1. LAMIVUDINE [Suspect]
     Indication: PRODUCT USED FOR UNKNOWN INDICATION
  2. ZIDOVUDINE (ZIDOVUDINE) [Suspect]
     Indication: PRODUCT USED FOR UNKNOWN INDICATION
  3. EFAVIRENZ (EFAVIRENZ) [Suspect]
     Indication: PRODUCT USED FOR UNKNOWN INDICATION

REACTIONS (15)
  - Feeling hot [None]
  - Arthralgia [None]
  - Nasal congestion [None]
  - Vomiting [None]
  - Dizziness [None]
  - Fatigue [None]
  - Chest pain [None]
  - Pollakiuria [None]
  - Pyrexia [None]
  - Rash [None]
  - Chills [None]
  - Candida infection [None]
  - Feeling abnormal [None]
  - Dyskinesia [None]
  - Abdominal discomfort [None]
